FAERS Safety Report 11082117 (Version 3)
Quarter: 2015Q3

REPORT INFORMATION
  Report Type: Spontaneous
  Country: JP (occurrence: JP)
  Receive Date: 20150501
  Receipt Date: 20150814
  Transmission Date: 20151125
  Serious: Yes (Life-Threatening, Other)
  Sender: FDA-Public Use
  Company Number: JP-GLAXOSMITHKLINE-JP2015JPN056987

PATIENT
  Age: 5 Year
  Sex: Male
  Weight: 18.5 kg

DRUGS (6)
  1. ASVERIN POWDER [Concomitant]
     Dosage: 0.24 G, 1D
  2. FLUNASE [Suspect]
     Active Substance: FLUTICASONE PROPIONATE
     Indication: RHINITIS ALLERGIC
     Dosage: 25 ?G, BID
     Route: 045
     Dates: start: 20150424, end: 20150425
  3. MUCODYNE DS [Concomitant]
     Dosage: 1 G, 1D
  4. CLARITH:DRYSYRUP [Concomitant]
     Dosage: 1.8 G, 1D
  5. ONON DRYSYRUP [Concomitant]
     Dosage: 1.2 G, 1D
  6. NIPOLAZIN [Concomitant]
     Dosage: 0.36 G, 1D

REACTIONS (15)
  - Diarrhoea [Recovered/Resolved]
  - Anaphylactic reaction [Recovered/Resolved]
  - Oropharyngeal pain [Unknown]
  - Eyelid oedema [Unknown]
  - Nausea [Recovered/Resolved]
  - Vomiting [Recovered/Resolved]
  - Larynx irritation [Unknown]
  - Pruritus [Unknown]
  - Rash [Recovered/Resolved]
  - Cough [Unknown]
  - Laryngeal oedema [Recovered/Resolved]
  - Abdominal pain [Unknown]
  - Gait disturbance [Unknown]
  - Face oedema [Recovered/Resolved]
  - Dermatitis contact [Recovered/Resolved]

NARRATIVE: CASE EVENT DATE: 20150425
